FAERS Safety Report 9493160 (Version 1)
Quarter: 2013Q3

REPORT INFORMATION
  Report Type: Spontaneous
  Country: US (occurrence: US)
  Receive Date: 20130902
  Receipt Date: 20130902
  Transmission Date: 20140515
  Serious: Yes (Other)
  Sender: FDA-Public Use
  Company Number: US-JNJFOC-20130810726

PATIENT
  Age: 2 Year
  Sex: Female

DRUGS (1)
  1. BENADRYL CHILD ALLERGY LIQUID CHERRY [Suspect]
     Indication: HYPERSENSITIVITY
     Dosage: 1 DOSE OF LIQUID
     Route: 048
     Dates: start: 1995

REACTIONS (2)
  - Dyspnoea [Recovered/Resolved]
  - Pharyngeal oedema [Recovered/Resolved]
